FAERS Safety Report 4750310-3 (Version None)
Quarter: 2005Q3

REPORT INFORMATION
  Report Type: 
  Country: None (occurrence: None)
  Receive Date: 20050823
  Receipt Date: 20050407
  Transmission Date: 20060218
  Serious: Yes (Other)
  Sender: FDA-Public Use
  Company Number: PHBS2005NL05243

PATIENT
  Age: 48 Year
  Sex: Female

DRUGS (6)
  1. RITALIN [Suspect]
     Dosage: 100 MG/D
     Dates: end: 20050330
  2. CARBAMAZEPINE [Suspect]
     Indication: TRIGEMINAL NEURALGIA
  3. EFFEXOR XR [Concomitant]
     Dosage: 75 MG/D
  4. NORTRILEN ^PROMONTA LUNDBECK^ [Concomitant]
     Dosage: 25 MG/D
  5. TRANXENE [Concomitant]
     Dosage: 15 MG/D
  6. TRAROLAN [Concomitant]
     Dosage: 100 MG/D

REACTIONS (2)
  - DRUG INTERACTION [None]
  - PSYCHOTIC DISORDER [None]
